FAERS Safety Report 5206065-1 (Version None)
Quarter: 2007Q1

REPORT INFORMATION
  Report Type: 
  Country: None (occurrence: None)
  Receive Date: 20070111
  Receipt Date: 20070108
  Transmission Date: 20070707
  Serious: Yes (Hospitalization)
  Sender: FDA-Public Use
  Company Number: CA-AMGEN-KDL202077

PATIENT
  Sex: Male

DRUGS (5)
  1. ENBREL [Suspect]
     Indication: RHEUMATOID ARTHRITIS
     Route: 058
     Dates: start: 20030108, end: 20060311
  2. METHOTREXATE [Concomitant]
     Dates: start: 19981124, end: 20061103
  3. CELEBREX [Concomitant]
     Dates: start: 19990602
  4. AVAPRO [Concomitant]
  5. FOLIC ACID [Concomitant]
     Dates: start: 19981124

REACTIONS (3)
  - FATIGUE [None]
  - LYMPHOMA [None]
  - WEIGHT DECREASED [None]
